FAERS Safety Report 7661251-6 (Version None)
Quarter: 2011Q3

REPORT INFORMATION
  Report Type: 
  Country: None (occurrence: None)
  Receive Date: 20110805
  Receipt Date: 20101001
  Transmission Date: 20111222
  Serious: No
  Sender: FDA-Public Use
  Company Number: US-ABBOTT-10P-163-0675715-00

PATIENT
  Sex: Female

DRUGS (7)
  1. PRILOSEC [Concomitant]
     Indication: PRODUCT USED FOR UNKNOWN INDICATION
  2. NIASPAN [Suspect]
     Indication: BLOOD TRIGLYCERIDES INCREASED
     Dates: start: 20100901
  3. NIASPAN [Suspect]
     Dates: start: 20020101, end: 20040101
  4. TRICOR [Concomitant]
     Indication: BLOOD TRIGLYCERIDES INCREASED
  5. DIOVAN [Concomitant]
     Indication: HYPERTENSION
  6. ACTIVELLA [Concomitant]
     Indication: DRUG HYPERSENSITIVITY
  7. ASPIRIN [Concomitant]
     Indication: PRODUCT USED FOR UNKNOWN INDICATION

REACTIONS (6)
  - FLUSHING [None]
  - MIGRAINE [None]
  - BLOOD PRESSURE INCREASED [None]
  - PRURITUS [None]
  - CYSTITIS [None]
  - FEELING HOT [None]
